FAERS Safety Report 9584218 (Version 1)
Quarter: 2013Q4

REPORT INFORMATION
  Report Type: Spontaneous
  Country: US (occurrence: US)
  Receive Date: 20131002
  Receipt Date: 20131002
  Transmission Date: 20140711
  Serious: No
  Sender: FDA-Public Use
  Company Number: US-AMGEN-USASP2013051687

PATIENT
  Age: 60 Year
  Sex: Female

DRUGS (9)
  1. ENBREL [Suspect]
     Indication: RHEUMATOID ARTHRITIS
     Dosage: 50 MG, UNK
     Route: 065
     Dates: start: 20130701
  2. FOLGARD [Concomitant]
     Dosage: UNK
  3. LEFLUNOMIDE [Concomitant]
     Dosage: 20 MG, UNK
  4. SYNTHROID [Concomitant]
     Dosage: 50 MUG, UNK
  5. PRILOSEC                           /00661201/ [Concomitant]
     Dosage: 20 MG, UNK
  6. FOLIC ACID [Concomitant]
     Dosage: 1 MG, UNK
  7. SIMVASTATIN [Concomitant]
     Dosage: 80 MG, UNK
  8. MELOXICAM [Concomitant]
     Dosage: 15 MG, UNK
  9. MONTELUKAST [Concomitant]
     Dosage: 10 MG, UNK

REACTIONS (1)
  - Alopecia [Unknown]
